FAERS Safety Report 20900083 (Version 4)
Quarter: 2022Q3

REPORT INFORMATION
  Report Type: Report from Study
  Country: US (occurrence: US)
  Receive Date: 20220601
  Receipt Date: 20220830
  Transmission Date: 20221027
  Serious: No
  Sender: FDA-Public Use
  Company Number: US-NOVARTISTESTPH-NVSC2022US125809

PATIENT
  Age: 80 Year
  Sex: Female

DRUGS (2)
  1. LEQVIO [Suspect]
     Active Substance: INCLISIRAN SODIUM
     Indication: Product used for unknown indication
     Dosage: UNK
     Route: 058
     Dates: start: 20220519
  2. LEQVIO [Suspect]
     Active Substance: INCLISIRAN SODIUM
     Dosage: UNK
     Route: 058
     Dates: start: 20220823

REACTIONS (7)
  - Bronchitis [Recovering/Resolving]
  - Cough [Recovering/Resolving]
  - Hypersensitivity [Recovering/Resolving]
  - Arthritis [Recovering/Resolving]
  - Injection site pain [Recovering/Resolving]
  - Hypotension [Unknown]
  - COVID-19 [Unknown]

NARRATIVE: CASE EVENT DATE: 20220825
